FAERS Safety Report 17806291 (Version 6)
Quarter: 2021Q3

REPORT INFORMATION
  Report Type: Report from Study
  Country: FR (occurrence: FR)
  Receive Date: 20200520
  Receipt Date: 20210705
  Transmission Date: 20211014
  Serious: Yes (Death, Hospitalization)
  Sender: FDA-Public Use
  Company Number: FR-GLAXOSMITHKLINE-FR2020GSK073095

PATIENT
  Age: 70 Year
  Sex: Female
  Weight: 59 kg

DRUGS (16)
  1. CISPLATIN. [Concomitant]
     Active Substance: CISPLATIN
     Dosage: UNK
  2. SIMVASTATIN. [Concomitant]
     Active Substance: SIMVASTATIN
     Indication: DYSLIPIDAEMIA
     Dosage: 20 MG, QD
     Route: 048
  3. PRIMPERAN [Concomitant]
     Active Substance: METOCLOPRAMIDE HYDROCHLORIDE
     Indication: VOMITING
     Dosage: 10 MG
     Route: 048
     Dates: start: 20200328, end: 20200328
  4. CARBOPLATIN. [Suspect]
     Active Substance: CARBOPLATIN
     Dosage: 5 AUC, Z(EVERY 3 WEEKS)
     Route: 042
     Dates: start: 20200227, end: 20200227
  5. DOSTARLIMAB [Suspect]
     Active Substance: DOSTARLIMAB
     Indication: OVARIAN CANCER
     Dosage: 500 MG, Z (EVERY 3 WEEKS)
     Dates: start: 20191129, end: 20191129
  6. DOCETAXEL. [Concomitant]
     Active Substance: DOCETAXEL
     Dosage: UNK
  7. BETAHISTIN [Concomitant]
     Active Substance: BETAHISTINE
     Indication: PROPHYLAXIS
     Dosage: 24 MG, BID
     Route: 048
  8. CARBOPLATIN. [Suspect]
     Active Substance: CARBOPLATIN
     Indication: OVARIAN CANCER
     Dosage: 5 AUC, Z(EVERY 3 WEEKS)
     Route: 042
     Dates: start: 20191108, end: 20191108
  9. PACLITAXEL. [Suspect]
     Active Substance: PACLITAXEL
     Indication: OVARIAN CANCER
     Dosage: 288 MG
     Route: 042
     Dates: start: 20191108, end: 20191108
  10. PACLITAXEL. [Suspect]
     Active Substance: PACLITAXEL
     Dosage: 270 MG
     Route: 042
     Dates: start: 20200227, end: 20200227
  11. BEVACIZUMAB. [Suspect]
     Active Substance: BEVACIZUMAB
     Indication: OVARIAN CANCER
     Dosage: 800 MG (15MG/KG), EVERY 3 WEEKS
     Route: 042
     Dates: start: 20200206, end: 20200206
  12. NIRAPARIB [Suspect]
     Active Substance: NIRAPARIB
     Indication: OVARIAN CANCER
     Dosage: 200 MG, QD
     Dates: start: 20200409, end: 20200423
  13. ZOPHREN [Concomitant]
     Active Substance: ONDANSETRON
     Indication: VOMITING
  14. DOSTARLIMAB [Suspect]
     Active Substance: DOSTARLIMAB
     Dosage: 500 MG, Z(EVERY 3 WEEKS)
     Dates: start: 20200409, end: 20200409
  15. BEVACIZUMAB. [Suspect]
     Active Substance: BEVACIZUMAB
     Dosage: 750 MG/KG
     Route: 042
     Dates: start: 20200409, end: 20200409
  16. ZOPHREN [Concomitant]
     Active Substance: ONDANSETRON
     Indication: NAUSEA
     Dosage: 8 MG
     Route: 048
     Dates: start: 20200415, end: 20200415

REACTIONS (2)
  - Mucosal inflammation [Not Recovered/Not Resolved]
  - Lung disorder [Fatal]

NARRATIVE: CASE EVENT DATE: 20200423
